FAERS Safety Report 14601914 (Version 7)
Quarter: 2018Q3

REPORT INFORMATION
  Report Type: Report from Study
  Country: None (occurrence: US)
  Receive Date: 20180306
  Receipt Date: 20180718
  Transmission Date: 20181010
  Serious: Yes (Other)
  Sender: FDA-Public Use
  Company Number: US-ABBVIE-16K-163-1798305-00

PATIENT
  Age: 66 Year
  Sex: Male
  Weight: 129.39 kg

DRUGS (14)
  1. HUMIRA [Suspect]
     Active Substance: ADALIMUMAB
     Route: 058
     Dates: start: 2014
  2. FUROSEMIDE. [Concomitant]
     Active Substance: FUROSEMIDE
     Indication: FLUID RETENTION
  3. GLUCOSAMINE + CHONDROITIN [Concomitant]
     Indication: PRODUCT USED FOR UNKNOWN INDICATION
  4. HUMIRA [Suspect]
     Active Substance: ADALIMUMAB
     Indication: RHEUMATOID ARTHRITIS
     Route: 058
  5. SPIRONOLACTONE. [Concomitant]
     Active Substance: SPIRONOLACTONE
     Indication: FLUID RETENTION
  6. GLYPRIDE [Concomitant]
     Active Substance: GLIMEPIRIDE
     Indication: FLUID RETENTION
  7. OSTEO BI FLEX GLUCOSAMINE [Concomitant]
     Indication: OSTEOARTHRITIS
  8. HUMIRA [Suspect]
     Active Substance: ADALIMUMAB
     Indication: RHEUMATOID ARTHRITIS
     Route: 058
     Dates: start: 2011
  9. METFORMIN [Concomitant]
     Active Substance: METFORMIN HYDROCHLORIDE
     Indication: DIABETES MELLITUS
  10. HUMIRA [Suspect]
     Active Substance: ADALIMUMAB
     Route: 058
     Dates: start: 2013, end: 2014
  11. METHOTREXATE. [Suspect]
     Active Substance: METHOTREXATE
     Indication: PRODUCT USED FOR UNKNOWN INDICATION
     Route: 065
  12. SUPARTZ [Suspect]
     Active Substance: HYALURONATE SODIUM
     Indication: ARTHRITIS
     Route: 065
     Dates: start: 201801
  13. FOLIC ACID. [Concomitant]
     Active Substance: FOLIC ACID
     Indication: ARTHRITIS
  14. LISINOPRIL + HIDROCLOROTIAZIDA [Concomitant]
     Active Substance: HYDROCHLOROTHIAZIDE\LISINOPRIL
     Indication: HYPERTENSION

REACTIONS (26)
  - Blood glucose decreased [Unknown]
  - Platelet count decreased [Not Recovered/Not Resolved]
  - Red blood cell count decreased [Not Recovered/Not Resolved]
  - Fatigue [Not Recovered/Not Resolved]
  - Cataract [Not Recovered/Not Resolved]
  - Platelet count decreased [Recovered/Resolved]
  - Asthenia [Unknown]
  - Blood count abnormal [Unknown]
  - Arthritis [Unknown]
  - Hepatomegaly [Not Recovered/Not Resolved]
  - Abdominal distension [Unknown]
  - Iron deficiency anaemia [Not Recovered/Not Resolved]
  - Peripheral swelling [Recovered/Resolved]
  - Cardiac disorder [Unknown]
  - Osteoarthritis [Unknown]
  - White blood cell count increased [Recovered/Resolved]
  - Cardiovascular disorder [Unknown]
  - Peripheral swelling [Not Recovered/Not Resolved]
  - Injection site pain [Recovered/Resolved]
  - Skin infection [Recovered/Resolved]
  - White blood cell count decreased [Recovered/Resolved]
  - Blister [Not Recovered/Not Resolved]
  - Peripheral vascular disorder [Recovered/Resolved]
  - Splenomegaly [Not Recovered/Not Resolved]
  - Drug ineffective [Not Recovered/Not Resolved]
  - Skin infection [Recovered/Resolved]

NARRATIVE: CASE EVENT DATE: 2014
